FAERS Safety Report 22008574 (Version 1)
Quarter: 2023Q1

REPORT INFORMATION
  Report Type: Spontaneous
  Country: US (occurrence: US)
  Receive Date: 20230219
  Receipt Date: 20230219
  Transmission Date: 20230417
  Serious: No
  Sender: FDA-Public Use
  Company Number: US-JNJFOC-20230160755

PATIENT
  Age: 56 Year
  Sex: Male

DRUGS (1)
  1. MENS ROGAINE EXTRA STRENGTH [Suspect]
     Active Substance: MINOXIDIL
     Indication: Product used for unknown indication
     Dosage: HALF A CAPFUL
     Route: 065
     Dates: start: 202212

REACTIONS (3)
  - Product residue present [Unknown]
  - Inappropriate schedule of product administration [Unknown]
  - Overdose [Unknown]
